FAERS Safety Report 19451430 (Version 1)
Quarter: 2021Q2

REPORT INFORMATION
  Report Type: Spontaneous
  Country: US (occurrence: US)
  Receive Date: 20210622
  Receipt Date: 20210622
  Transmission Date: 20210717
  Serious: Yes (Hospitalization)
  Sender: FDA-Public Use
  Company Number: None

PATIENT
  Sex: Female

DRUGS (18)
  1. JANUVIA [Concomitant]
     Active Substance: SITAGLIPTIN PHOSPHATE
  2. ELIQUIS [Concomitant]
     Active Substance: APIXABAN
  3. GLIMEPRIDE [Concomitant]
     Active Substance: GLIMEPIRIDE
  4. TRAZODONE [Concomitant]
     Active Substance: TRAZODONE HYDROCHLORIDE
  5. ARIPIPRAZOLE. [Concomitant]
     Active Substance: ARIPIPRAZOLE
  6. TORESEMIDE [Concomitant]
     Active Substance: TORSEMIDE
  7. OXYCODONE [Concomitant]
     Active Substance: OXYCODONE
  8. NAPROXEN. [Concomitant]
     Active Substance: NAPROXEN
  9. UBREVLY [Concomitant]
  10. ATORVASTATIN [Concomitant]
     Active Substance: ATORVASTATIN
  11. TIZANIDINE. [Concomitant]
     Active Substance: TIZANIDINE
  12. SPIRONOLACT [Concomitant]
     Active Substance: SPIRONOLACTONE
  13. MORPHINE SUL [Concomitant]
     Active Substance: MORPHINE SULFATE
  14. MAGNESIUM OX [Concomitant]
  15. STELARA [Suspect]
     Active Substance: USTEKINUMAB
     Indication: CROHN^S DISEASE
     Dosage: OTHER FREQUENCY:Q8W;?
     Route: 058
     Dates: start: 20200624
  16. POT CHLORIDE [Concomitant]
     Active Substance: POTASSIUM CHLORIDE
  17. METOLAZONE. [Concomitant]
     Active Substance: METOLAZONE
  18. CITALOPRAM [Concomitant]
     Active Substance: CITALOPRAM HYDROBROMIDE

REACTIONS (10)
  - Pruritus [None]
  - Headache [None]
  - Injection site reaction [None]
  - Malaise [None]
  - Fatigue [None]
  - Cystitis [None]
  - Fungal infection [None]
  - Alopecia [None]
  - Drug ineffective [None]
  - Discomfort [None]
